FAERS Safety Report 6163465-3 (Version None)
Quarter: 2009Q2

REPORT INFORMATION
  Report Type: 
  Country: None (occurrence: None)
  Receive Date: 20090420
  Receipt Date: 20090420
  Transmission Date: 20091009
  Serious: No
  Sender: FDA-Public Use
  Company Number: None

PATIENT
  Sex: Female
  Weight: 70.3075 kg

DRUGS (2)
  1. DIGITEK .125MG BERTEK [Suspect]
     Indication: ATRIAL FIBRILLATION
     Dosage: 1 DAILY PO
     Route: 048
     Dates: start: 20080401, end: 20080501
  2. DIGOXIN [Suspect]
     Indication: ATRIAL FIBRILLATION
     Dosage: 1 DAILY PO
     Route: 048
     Dates: start: 20090312, end: 20090416

REACTIONS (6)
  - ATRIAL FIBRILLATION [None]
  - BLOOD PRESSURE DECREASED [None]
  - CARDIAC DISORDER [None]
  - FATIGUE [None]
  - HEART RATE DECREASED [None]
  - PRODUCT QUALITY ISSUE [None]
